FAERS Safety Report 13685289 (Version 1)
Quarter: 2017Q2

REPORT INFORMATION
  Report Type: Spontaneous
  Country: DE (occurrence: DE)
  Receive Date: 20170623
  Receipt Date: 20170623
  Transmission Date: 20170830
  Serious: Yes (Hospitalization, Congenital Anomaly, Other)
  Sender: FDA-Public Use
  Company Number: DE-GLAXOSMITHKLINE-DE2017GSK096668

PATIENT
  Age: 1 Day
  Sex: Male
  Weight: 2.76 kg

DRUGS (11)
  1. CALCIUM [Concomitant]
     Active Substance: CALCIUM
     Indication: MINERAL SUPPLEMENTATION
     Dosage: 1200 MG, QD
     Route: 064
     Dates: start: 20160403, end: 20161217
  2. OXYTOCIN. [Concomitant]
     Active Substance: OXYTOCIN
     Indication: LABOUR INDUCTION
     Dosage: UNK
     Route: 064
     Dates: start: 20161217, end: 20161217
  3. BEGRIPAL [Concomitant]
     Indication: PROPHYLAXIS
     Dosage: UNK
     Route: 064
     Dates: start: 20160926
  4. CITALOPRAM [Suspect]
     Active Substance: CITALOPRAM HYDROBROMIDE
     Indication: BIPOLAR DISORDER
     Dosage: 20 MG, QD
     Route: 064
     Dates: start: 20160403, end: 20161217
  5. L-THYROXIN [Concomitant]
     Active Substance: LEVOTHYROXINE SODIUM
     Indication: HYPOTHYROIDISM
     Dosage: UNK
     Route: 064
     Dates: start: 20160403, end: 20161217
  6. FOLIO FORTE [Concomitant]
     Active Substance: FOLIC ACID\VITAMINS
     Indication: PROPHYLAXIS OF NEURAL TUBE DEFECT
     Dosage: 0.8 MG, QD
     Route: 064
  7. IBUPROFEN. [Concomitant]
     Active Substance: IBUPROFEN
     Indication: PAIN
     Dosage: UNK
     Route: 064
  8. VITAMIN B12 [Concomitant]
     Active Substance: CYANOCOBALAMIN
     Indication: VITAMIN SUPPLEMENTATION
     Dosage: 1000 ?G, PER MONTH
     Route: 064
     Dates: start: 2014
  9. VALDOXAN [Suspect]
     Active Substance: AGOMELATINE
     Indication: BIPOLAR DISORDER
     Dosage: 25 MG, QD
     Route: 064
     Dates: start: 20160403, end: 20161217
  10. IRON [Concomitant]
     Active Substance: IRON
     Indication: MINERAL SUPPLEMENTATION
     Dosage: 50 MG, QD
     Route: 064
     Dates: start: 20160403, end: 20161217
  11. LAMOTRIGINE. [Suspect]
     Active Substance: LAMOTRIGINE
     Indication: BIPOLAR DISORDER
     Dosage: 150 MG, BID
     Route: 064
     Dates: start: 20160403, end: 20161217

REACTIONS (5)
  - Hyperbilirubinaemia neonatal [Recovered/Resolved]
  - Haemangioma congenital [Recovering/Resolving]
  - Preterm premature rupture of membranes [Unknown]
  - Foetal exposure during pregnancy [Unknown]
  - Gastrointestinal infection [Unknown]

NARRATIVE: CASE EVENT DATE: 20161217
